FAERS Safety Report 24455396 (Version 2)
Quarter: 2024Q4

REPORT INFORMATION
  Report Type: Report from Study
  Country: US (occurrence: US)
  Receive Date: 20241017
  Receipt Date: 20241018
  Transmission Date: 20250115
  Serious: No
  Sender: ROCHE
  Company Number: US-ROCHE-3480149

PATIENT
  Age: 42 Year
  Sex: Female

DRUGS (16)
  1. RITUXAN [Suspect]
     Active Substance: RITUXIMAB
     Indication: Systemic lupus erythematosus
     Dosage: 500 MG/ 50 ML (10 MG/ML CONCENTRATE)?REPEAT EVERY 4 TO 6 MONTHS
     Route: 041
     Dates: start: 20230503
  2. RITUXAN [Suspect]
     Active Substance: RITUXIMAB
     Indication: Immune thrombocytopenia
  3. BACTRIM DS [Concomitant]
     Active Substance: SULFAMETHOXAZOLE\TRIMETHOPRIM
     Dosage: 800 - 160 MG
     Route: 048
     Dates: start: 20230622
  4. FOLIC ACID [Concomitant]
     Active Substance: FOLIC ACID
     Route: 048
     Dates: start: 20230426
  5. FOSAMAX [Concomitant]
     Active Substance: ALENDRONATE SODIUM
     Route: 048
     Dates: start: 20230426
  6. METHOTREXATE SODIUM [Concomitant]
     Active Substance: METHOTREXATE SODIUM
     Dosage: 6 TABLETS
     Route: 048
     Dates: start: 20231207
  7. NALTREXONE [Concomitant]
     Active Substance: NALTREXONE
     Route: 048
     Dates: start: 20231010
  8. PLAQUENIL [Concomitant]
     Active Substance: HYDROXYCHLOROQUINE SULFATE
     Route: 048
     Dates: start: 20230426
  9. PREDNISONE [Concomitant]
     Active Substance: PREDNISONE
     Dosage: 6 TABLETS
     Route: 048
     Dates: start: 20230426
  10. PREDNISONE [Concomitant]
     Active Substance: PREDNISONE
     Route: 048
     Dates: start: 20231010
  11. TIZANIDINE [Concomitant]
     Active Substance: TIZANIDINE
     Dosage: 0.5 TO 2 TABLETS
     Route: 048
     Dates: start: 20210517
  12. TIZANIDINE [Concomitant]
     Active Substance: TIZANIDINE
     Dosage: 0.5 TO 2 TABLETS
     Route: 048
     Dates: start: 20201006
  13. VITAMIN D2 [Concomitant]
     Active Substance: ERGOCALCIFEROL
     Dosage: 50,000 UNITS
     Route: 048
     Dates: start: 20221017
  14. CHOLECALCIFEROL [Concomitant]
     Active Substance: CHOLECALCIFEROL
     Dosage: 4000 UNITS
  15. CYMBALTA [Concomitant]
     Active Substance: DULOXETINE HYDROCHLORIDE
     Route: 048
     Dates: start: 20201006
  16. VITAMIN D3 [Concomitant]
     Active Substance: CHOLECALCIFEROL
     Dosage: 5000 UNIT (2 TABLETS)
     Route: 048

REACTIONS (8)
  - Off label use [Unknown]
  - Fatigue [Unknown]
  - Muscular weakness [Unknown]
  - Chest pain [Unknown]
  - Nausea [Unknown]
  - Rash [Unknown]
  - Insomnia [Unknown]
  - Anxiety [Unknown]
